FAERS Safety Report 4353059-4 (Version None)
Quarter: 2004Q2

REPORT INFORMATION
  Report Type: 
  Country: None (occurrence: None)
  Receive Date: 20040429
  Receipt Date: 20040419
  Transmission Date: 20050107
  Serious: Yes (Hospitalization, Other)
  Sender: FDA-Public Use
  Company Number: CA-JNJFOC-20040203645

PATIENT
  Age: 57 Year
  Sex: Male

DRUGS (9)
  1. REMICADE [Suspect]
     Indication: RHEUMATOID ARTHRITIS
     Dosage: 400 MG, INTRAVENOUS
     Route: 042
     Dates: start: 20040113
  2. PLAQUENIL [Concomitant]
  3. PANTOLOC (PANTOPRAZOLE) [Concomitant]
  4. CELEBREX [Concomitant]
  5. METHOTREXATE SODIUM [Concomitant]
  6. LEUCOMIN (FOLINIC ACID) [Concomitant]
  7. METOPROLOL (METOPROLOL) [Concomitant]
  8. ENTROPHEN (ACETYLSALICYLIC ACID) [Concomitant]
  9. NITROSPRAY (ISOSORBIDE DINITRATE) [Concomitant]

REACTIONS (7)
  - ATHEROSCLEROSIS [None]
  - CHEST DISCOMFORT [None]
  - CORONARY ARTERY DISSECTION [None]
  - CORONARY ARTERY STENOSIS [None]
  - MITRAL VALVE INCOMPETENCE [None]
  - MYOCARDIAL INFARCTION [None]
  - VENTRICULAR HYPOKINESIA [None]
